FAERS Safety Report 7674412-7 (Version None)
Quarter: 2011Q3

REPORT INFORMATION
  Report Type: 
  Country: None (occurrence: None)
  Receive Date: 20110810
  Receipt Date: 20110727
  Transmission Date: 20111222
  Serious: Yes (Hospitalization)
  Sender: FDA-Public Use
  Company Number: US-UCBSA-037919

PATIENT
  Age: 58 Year
  Sex: Female

DRUGS (5)
  1. PHENOBARBITAL TAB [Concomitant]
     Indication: EPILEPSY
     Dates: start: 19631119, end: 20110720
  2. PHENOBARBITAL TAB [Concomitant]
     Dates: start: 20110721
  3. ZONISAMIDE [Concomitant]
     Route: 048
     Dates: start: 20100210
  4. LEVETIRACETAM [Suspect]
     Indication: EPILEPSY
     Dosage: STARTED ON 21/APR/2010 AT 1000 MG
     Dates: start: 20100606, end: 20110406
  5. LEVETIRACETAM [Suspect]
     Dates: start: 20110406

REACTIONS (4)
  - SOMNOLENCE [None]
  - ADVERSE EVENT [None]
  - WEIGHT DECREASED [None]
  - SEDATION [None]
